FAERS Safety Report 16259951 (Version 1)
Quarter: 2019Q2

REPORT INFORMATION
  Report Type: Spontaneous
  Country: US (occurrence: US)
  Receive Date: 20190501
  Receipt Date: 20190501
  Transmission Date: 20190711
  Serious: No
  Sender: FDA-Public Use
  Company Number: US-SUNOVION-2019SUN001642

PATIENT
  Sex: Female

DRUGS (2)
  1. LATUDA [Suspect]
     Active Substance: LURASIDONE HYDROCHLORIDE
     Indication: DEPRESSION
     Dosage: 20 MG, QD
     Route: 048
     Dates: start: 20190419
  2. LATUDA [Suspect]
     Active Substance: LURASIDONE HYDROCHLORIDE
     Indication: ANXIETY

REACTIONS (10)
  - Drug ineffective for unapproved indication [Unknown]
  - Fatigue [Unknown]
  - Restlessness [Unknown]
  - Weight increased [Unknown]
  - Somnolence [Unknown]
  - Anxiety [Unknown]
  - Nervousness [Unknown]
  - Blood pressure increased [Unknown]
  - Off label use [Unknown]
  - Depression [Unknown]

NARRATIVE: CASE EVENT DATE: 20190419
